FAERS Safety Report 7383416-3 (Version None)
Quarter: 2011Q1

REPORT INFORMATION
  Report Type: 
  Country: None (occurrence: None)
  Receive Date: 20110325
  Receipt Date: 20110325
  Transmission Date: 20110831
  Serious: Yes (Hospitalization)
  Sender: FDA-Public Use
  Company Number: None

PATIENT
  Age: 50 Year
  Sex: Male
  Weight: 181.4 kg

DRUGS (9)
  1. VITAMIN B-12 [Concomitant]
  2. CELEXA [Concomitant]
  3. CA + VIT [Concomitant]
  4. LORAZEPAM [Concomitant]
  5. COUMADIN [Suspect]
     Indication: ATRIAL FIBRILLATION
     Dosage: 15MG BID PO CHRONIC W/ RECENT INCREASE
     Route: 048
  6. COREG [Concomitant]
  7. LASIX [Concomitant]
  8. ENALAPRIL MALEATE [Concomitant]
  9. M.V.I. [Concomitant]

REACTIONS (7)
  - PENILE ULCERATION [None]
  - INTERNATIONAL NORMALISED RATIO DECREASED [None]
  - ECCHYMOSIS [None]
  - EPISTAXIS [None]
  - INTERNATIONAL NORMALISED RATIO INCREASED [None]
  - HAEMORRHAGE [None]
  - COAGULOPATHY [None]
